FAERS Safety Report 14610704 (Version 2)
Quarter: 2018Q2

REPORT INFORMATION
  Report Type: Spontaneous
  Country: US (occurrence: US)
  Receive Date: 20180307
  Receipt Date: 20180410
  Transmission Date: 20180711
  Serious: No
  Sender: FDA-Public Use
  Company Number: US-HETERO CORPORATE-HET2018US00149

PATIENT
  Age: 57 Year
  Sex: Male
  Weight: 83.45 kg

DRUGS (1)
  1. SILDENAFIL. [Suspect]
     Active Substance: SILDENAFIL
     Indication: ERECTILE DYSFUNCTION
     Dosage: 20 MG, QD (5 TABLETS PER DAY)
     Route: 065
     Dates: start: 20180108

REACTIONS (1)
  - Drug ineffective [Unknown]
